FAERS Safety Report 11092085 (Version 2)
Quarter: 2015Q2

REPORT INFORMATION
  Report Type: Report from Study
  Country: CA (occurrence: CA)
  Receive Date: 20150505
  Receipt Date: 20150611
  Transmission Date: 20150821
  Serious: Yes (Death, Other)
  Sender: FDA-Public Use
  Company Number: PHHY2015CA054394

PATIENT
  Sex: Male

DRUGS (2)
  1. VENTOLIN P.F. [Suspect]
     Active Substance: ALBUTEROL SULFATE
     Indication: PRODUCT USED FOR UNKNOWN INDICATION
     Route: 065
  2. CLOZARIL [Suspect]
     Active Substance: CLOZAPINE
     Indication: SCHIZOPHRENIA
     Dosage: 450 MG, QD
     Route: 048
     Dates: start: 20000306, end: 20150303

REACTIONS (7)
  - Overdose [Unknown]
  - Malaise [Unknown]
  - Cardiomegaly [Unknown]
  - Chest discomfort [Unknown]
  - Myocardial infarction [Fatal]
  - Arteriosclerosis [Unknown]
  - Dyspnoea [Unknown]
